FAERS Safety Report 19630833 (Version 1)
Quarter: 2021Q3

REPORT INFORMATION
  Report Type: Report from Study
  Country: US (occurrence: US)
  Receive Date: 20210729
  Receipt Date: 20210729
  Transmission Date: 20211014
  Serious: Yes (Hospitalization)
  Sender: FDA-Public Use
  Company Number: US-EXELIXIS-CABO-21041594

PATIENT
  Age: 74 Year
  Sex: Male

DRUGS (1)
  1. CABOMETYX [Suspect]
     Active Substance: CABOZANTINIB S-MALATE
     Indication: RENAL CELL CARCINOMA
     Dosage: 40 MG, QD
     Route: 048
     Dates: start: 20210610, end: 20210710

REACTIONS (8)
  - Loss of personal independence in daily activities [Unknown]
  - Fall [Unknown]
  - Muscular weakness [Unknown]
  - Cardiac failure [Unknown]
  - Diarrhoea [Unknown]
  - Fatigue [Unknown]
  - Jaundice [Unknown]
  - Confusional state [Unknown]

NARRATIVE: CASE EVENT DATE: 202107
